FAERS Safety Report 11068389 (Version 1)
Quarter: 2015Q2

REPORT INFORMATION
  Report Type: Spontaneous
  Country: US (occurrence: US)
  Receive Date: 20150427
  Receipt Date: 20150427
  Transmission Date: 20150821
  Serious: No
  Sender: FDA-Public Use
  Company Number: US-ASTRAZENECA-2014SE32878

PATIENT
  Age: 70 Year
  Sex: Male
  Weight: 63.5 kg

DRUGS (1)
  1. RHINOCORT AQUA [Suspect]
     Active Substance: BUDESONIDE
     Indication: RHINITIS
     Dosage: 1 OR 2 SPRAYS DAILY
     Route: 045
     Dates: start: 20140509

REACTIONS (1)
  - Exposure via direct contact [Unknown]

NARRATIVE: CASE EVENT DATE: 20140509
